FAERS Safety Report 21498621 (Version 1)
Quarter: 2022Q4

REPORT INFORMATION
  Report Type: Spontaneous
  Country: US (occurrence: US)
  Receive Date: 20221024
  Receipt Date: 20221024
  Transmission Date: 20230113
  Serious: Yes (Other)
  Sender: FDA-Public Use
  Company Number: US-BAYER-2022A141262

PATIENT
  Sex: Female

DRUGS (1)
  1. MIRENA [Suspect]
     Active Substance: LEVONORGESTREL
     Dosage: 20?G/DAY
     Route: 015
     Dates: end: 20220819

REACTIONS (14)
  - Haemorrhage [None]
  - Suicidal ideation [None]
  - Lethargy [None]
  - Cystitis interstitial [None]
  - Bacterial infection [None]
  - Urinary tract infection [None]
  - Medical device pain [None]
  - Abdominal pain [None]
  - Mood swings [None]
  - Nausea [None]
  - Breast tenderness [None]
  - Fatigue [None]
  - Depression [None]
  - Weight increased [None]
